FAERS Safety Report 10048030 (Version 1)
Quarter: 2014Q1

REPORT INFORMATION
  Report Type: Spontaneous
  Country: IT (occurrence: IT)
  Receive Date: 20140331
  Receipt Date: 20140331
  Transmission Date: 20141002
  Serious: Yes (Hospitalization, Other)
  Sender: FDA-Public Use
  Company Number: IT-ACTAVIS-2014-05641

PATIENT
  Age: 3 Year
  Sex: Male
  Weight: 15 kg

DRUGS (2)
  1. SALBUTAMOL (UNKNOWN) [Suspect]
     Indication: WHEEZING
     Dosage: 1.5 MG, TID
     Route: 048
  2. SALBUTAMOL (UNKNOWN) [Suspect]
     Dosage: 1.5 MG, TID
     Route: 048

REACTIONS (2)
  - Urinary retention [Recovered/Resolved]
  - Eczema [Unknown]
